FAERS Safety Report 6232650-4 (Version None)
Quarter: 2009Q2

REPORT INFORMATION
  Report Type: 
  Country: None (occurrence: None)
  Receive Date: 20090612
  Receipt Date: 20090612
  Transmission Date: 20091009
  Serious: No
  Sender: FDA-Public Use
  Company Number: None

PATIENT
  Age: 80 Year
  Sex: Female
  Weight: 74.8435 kg

DRUGS (1)
  1. AMITIZA [Suspect]
     Indication: IRRITABLE BOWEL SYNDROME
     Dosage: 1 TWICE PO
     Route: 048
     Dates: start: 20090401, end: 20090616

REACTIONS (2)
  - DISCOMFORT [None]
  - OEDEMA PERIPHERAL [None]
